FAERS Safety Report 8583490-2 (Version None)
Quarter: 2012Q3

REPORT INFORMATION
  Report Type: 
  Country: None (occurrence: None)
  Receive Date: 20120809
  Receipt Date: 20120730
  Transmission Date: 20120928
  Serious: Yes (Hospitalization)
  Sender: FDA-Public Use
  Company Number: US-GILEAD-2012-0056187

PATIENT
  Sex: Female

DRUGS (15)
  1. PLACEBO [Suspect]
     Indication: PULMONARY ARTERIAL HYPERTENSION
     Dosage: UNK
     Route: 048
     Dates: start: 20120116, end: 20120529
  2. MINOXIDIL [Concomitant]
     Indication: HYPERTENSION
     Dosage: 2.5MG TWICE PER DAY
     Route: 048
     Dates: start: 20100624, end: 20120529
  3. CANDESARTAN CILEXETIL [Concomitant]
     Indication: HYPERTENSION
     Dosage: 32MG PER DAY
     Route: 048
     Dates: start: 20100709, end: 20120528
  4. NEXIUM [Concomitant]
  5. FUROSEMIDE [Concomitant]
     Dosage: 20MG AS REQUIRED
     Route: 048
     Dates: start: 20100624, end: 20120410
  6. FUROSEMIDE [Concomitant]
     Indication: OEDEMA
     Dosage: 20 MG, BID
     Dates: start: 20120419, end: 20120528
  7. VIT B COMPLEX [Concomitant]
  8. ALDACTONE [Concomitant]
     Indication: OEDEMA
     Dosage: 25MG TWICE PER DAY
     Route: 048
     Dates: start: 20111216, end: 20120410
  9. NORVASC [Concomitant]
     Dosage: 5MG PER DAY
     Route: 048
     Dates: start: 20100624, end: 20120529
  10. DITROPAN [Concomitant]
  11. CALCIUM VITAMIN D [Concomitant]
  12. NORVASC [Concomitant]
     Indication: HYPERTENSION
     Dosage: 5MG PER DAY
     Route: 048
     Dates: start: 20100624, end: 20120524
  13. GLUCOSAMINE CHONDROITIN            /01430901/ [Concomitant]
  14. METOPROLOL TARTRATE [Concomitant]
     Indication: HYPERTENSION
     Dosage: 25MG TWICE PER DAY
     Route: 048
     Dates: start: 20100624, end: 20120530
  15. LETAIRIS [Suspect]
     Indication: PULMONARY ARTERIAL HYPERTENSION
     Dosage: 10MG PER DAY
     Route: 048
     Dates: start: 20120116, end: 20120529

REACTIONS (1)
  - RENAL FAILURE [None]
